FAERS Safety Report 24558153 (Version 1)
Quarter: 2024Q4

REPORT INFORMATION
  Report Type: Spontaneous
  Country: US (occurrence: US)
  Receive Date: 20241028
  Receipt Date: 20241028
  Transmission Date: 20250115
  Serious: Yes (Other)
  Sender: JOHNSON AND JOHNSON
  Company Number: US-JNJFOC-20241058349

PATIENT

DRUGS (2)
  1. ERLEADA [Suspect]
     Active Substance: APALUTAMIDE
     Indication: Prostate cancer
     Route: 065
     Dates: start: 202404, end: 20240910
  2. HYDROCHLOROTHIAZIDE [Suspect]
     Active Substance: HYDROCHLOROTHIAZIDE
     Indication: Product used for unknown indication
     Route: 065
     Dates: start: 202406

REACTIONS (6)
  - Prostate cancer [Unknown]
  - Blood pressure increased [Unknown]
  - Urticaria [Recovering/Resolving]
  - Oedema peripheral [Unknown]
  - Dermatitis [Unknown]
  - Collagen-vascular disease [Unknown]
